FAERS Safety Report 6164516-2 (Version None)
Quarter: 2009Q2

REPORT INFORMATION
  Report Type: 
  Country: None (occurrence: None)
  Receive Date: 20090421
  Receipt Date: 20090406
  Transmission Date: 20091009
  Serious: Yes (Hospitalization, Other)
  Sender: FDA-Public Use
  Company Number: ADE2009-0555

PATIENT
  Sex: Male

DRUGS (4)
  1. AMOXICILLIN [Suspect]
     Indication: RESPIRATORY TRACT INFECTION
     Dates: start: 20070101
  2. ACETAMINOPHEN [Suspect]
     Indication: RESPIRATORY TRACT INFECTION
     Dates: start: 20070101
  3. IBUPROFEN [Suspect]
     Indication: RESPIRATORY TRACT INFECTION
     Dates: start: 20070101
  4. CLARITHROMYCIN [Suspect]
     Indication: RESPIRATORY TRACT INFECTION
     Dates: start: 20070101

REACTIONS (6)
  - ANAL ABSCESS [None]
  - APLASTIC ANAEMIA [None]
  - ENTEROCOCCAL INFECTION [None]
  - FUNGAL INFECTION [None]
  - PANCYTOPENIA [None]
  - STENOTROPHOMONAS INFECTION [None]
